FAERS Safety Report 10230922 (Version 3)
Quarter: 2014Q2

REPORT INFORMATION
  Report Type: Spontaneous
  Country: JP (occurrence: JP)
  Receive Date: 20140611
  Receipt Date: 20140625
  Transmission Date: 20141212
  Serious: Yes (Other)
  Sender: FDA-Public Use
  Company Number: PHHY2014JP066665

PATIENT
  Age: 19 Year
  Sex: Female

DRUGS (2)
  1. SANDIMMUN [Suspect]
     Indication: COLITIS ULCERATIVE
     Dosage: 12 ML, QD
     Route: 042
     Dates: start: 20140511, end: 20140527
  2. SANDIMMUN [Suspect]
     Indication: OFF LABEL USE

REACTIONS (6)
  - Ankylosing spondylitis [Recovered/Resolved]
  - Back pain [Recovered/Resolved]
  - Arthralgia [Unknown]
  - Chest expansion decreased [Unknown]
  - Musculoskeletal discomfort [Unknown]
  - Device related infection [Recovered/Resolved]
